FAERS Safety Report 8818106 (Version 1)
Quarter: 2012Q4

REPORT INFORMATION
  Report Type: 
  Country: ES (occurrence: ES)
  Receive Date: 20121001
  Receipt Date: 20121001
  Transmission Date: 20130627
  Serious: Yes (Hospitalization, Other)
  Sender: FDA-Public Use
  Company Number: ES-CELGENEUS-144-50794-12092112

PATIENT
  Age: 75 Year

DRUGS (2)
  1. VIDAZA [Suspect]
     Indication: REFRACTORY CYTOPENIA WITH MULTILINEAGE DYSPLASIA
     Route: 065
     Dates: start: 201104
  2. RED BLOOD CELLS [Concomitant]
     Indication: BLOOD TRANSFUSION DEPENDENT
     Route: 065

REACTIONS (4)
  - Pericardial effusion [Unknown]
  - Cardiac tamponade [Unknown]
  - Pancytopenia [Unknown]
  - Blood product transfusion dependent [Unknown]
